FAERS Safety Report 9448234 (Version 1)
Quarter: 2013Q3

REPORT INFORMATION
  Report Type: Spontaneous
  Country: NL (occurrence: NL)
  Receive Date: 20130808
  Receipt Date: 20130808
  Transmission Date: 20140515
  Serious: Yes (Hospitalization, Other)
  Sender: FDA-Public Use
  Company Number: NL-ASTRAZENECA-2013SE58990

PATIENT
  Age: 23803 Day
  Sex: Male
  Weight: 90 kg

DRUGS (12)
  1. BRILIQUE [Suspect]
     Indication: STENT PLACEMENT
     Route: 048
     Dates: start: 20130502
  2. SERTRALINE [Interacting]
     Indication: DEPRESSION
     Route: 048
     Dates: start: 20130521, end: 20130724
  3. CARBASALAAT [Interacting]
     Indication: STENT PLACEMENT
     Route: 048
     Dates: start: 20130502
  4. METOPROLOLSUCCINAAT (SANDOZ) [Concomitant]
     Route: 048
     Dates: start: 20130502
  5. PERINDOPRIL TERT-BUTYLAMINE FOCUS [Concomitant]
     Route: 048
     Dates: start: 20130502
  6. MEBEVERINE [Concomitant]
     Route: 048
     Dates: start: 19961229
  7. DOGMATIL [Concomitant]
     Dosage: 5MG/ML, 2 ML EVERYDAY
     Route: 048
     Dates: start: 20050302
  8. SYMBICORT TURBUHALER [Concomitant]
     Dosage: 400/12MCG/DO 60 DO, 2 DF THREE TIMES A DAY
     Route: 055
     Dates: start: 20100729
  9. MONTELUKAST [Concomitant]
     Route: 048
     Dates: start: 20040512
  10. OMEPRAZOL (SANDOZ) [Concomitant]
     Route: 048
     Dates: start: 20130502
  11. SIMVASTATINE (ACCORD) [Concomitant]
     Route: 048
     Dates: start: 20130502
  12. BERODUAL [Concomitant]
     Dosage: 200 DO
     Route: 055
     Dates: start: 20040401

REACTIONS (2)
  - Drug interaction [Unknown]
  - Diverticulum intestinal haemorrhagic [Recovering/Resolving]
